FAERS Safety Report 6138784-7 (Version None)
Quarter: 2009Q1

REPORT INFORMATION
  Report Type: 
  Country: None (occurrence: None)
  Receive Date: 20090327
  Receipt Date: 20090312
  Transmission Date: 20090719
  Serious: Yes (Death, Hospitalization)
  Sender: FDA-Public Use
  Company Number: PVS3-12-MAR-2009

PATIENT
  Age: 31 Year
  Sex: Female

DRUGS (1)
  1. SEROMYCIN [Suspect]
     Indication: TUBERCULOSIS
     Dosage: 250 MG, ORAL
     Route: 048
     Dates: start: 20080424, end: 20080516

REACTIONS (3)
  - COMPLETED SUICIDE [None]
  - CONFUSIONAL STATE [None]
  - DEPRESSION [None]
